FAERS Safety Report 7636422-5 (Version None)
Quarter: 2011Q3

REPORT INFORMATION
  Report Type: 
  Country: None (occurrence: None)
  Receive Date: 20110719
  Receipt Date: 20110706
  Transmission Date: 20111222
  Serious: Yes (Hospitalization)
  Sender: FDA-Public Use
  Company Number: MPS1-1000539

PATIENT
  Age: 22 Month
  Weight: 10.6 kg

DRUGS (23)
  1. ALDURAZYME [Suspect]
     Indication: MUCOPOLYSACCHARIDOSIS I
     Dosage: 5.8 MG, INTRAVENOUS
     Route: 042
     Dates: start: 20100610, end: 20110301
  2. TACROLIMUS [Concomitant]
  3. PIPERACILLIN W (PIPERACILLIN, TAZOBACTAM) [Concomitant]
  4. ANCEF [Concomitant]
  5. ENALAPRIL MALEATE [Concomitant]
  6. MYCOPHENOLATE MOFETIL [Concomitant]
  7. FLUCONAZOLE [Concomitant]
  8. LABETALOL HCL [Concomitant]
  9. BETAMETHASONE [Concomitant]
  10. BUSULFAN [Concomitant]
  11. CYCLOSPORINE [Concomitant]
  12. PREDNISONE [Concomitant]
  13. ACYCLOVIR [Concomitant]
  14. PENTAMIDINE (PENTAMIDINE) [Concomitant]
  15. AMLODIPINE [Concomitant]
  16. MAGNESIUM (MAGNESIUM) [Concomitant]
  17. FLUDARABINE PHOSPHATE [Concomitant]
  18. ANTI-THYMOCYTE GLOBULIN NOS [Concomitant]
  19. LORAZEPAM [Concomitant]
  20. GENTAMICIN [Concomitant]
  21. CYCLOSPORINE [Concomitant]
  22. METHYLPREDNISOLONE [Concomitant]
  23. CYCLOPHOSPHAMIDE [Concomitant]

REACTIONS (9)
  - ACUTE GRAFT VERSUS HOST DISEASE IN LIVER [None]
  - ACUTE GRAFT VERSUS HOST DISEASE IN SKIN [None]
  - HYPOPHAGIA [None]
  - ESCHERICHIA BACTERAEMIA [None]
  - ACUTE GRAFT VERSUS HOST DISEASE IN INTESTINE [None]
  - RESPIRATORY SYNCYTIAL VIRUS INFECTION [None]
  - ENTEROVIRUS INFECTION [None]
  - BLOOD STEM CELL TRANSPLANT FAILURE [None]
  - PYREXIA [None]
